APPROVED DRUG PRODUCT: MOTRIN
Active Ingredient: IBUPROFEN
Strength: 100MG
Dosage Form/Route: TABLET;ORAL
Application: N020418 | Product #001
Applicant: MCNEIL PEDIATRICS
Approved: Nov 16, 1994 | RLD: No | RS: No | Type: DISCN